FAERS Safety Report 6280275-7 (Version None)
Quarter: 2009Q3

REPORT INFORMATION
  Report Type: 
  Country: None (occurrence: None)
  Receive Date: 20090723
  Receipt Date: 20090715
  Transmission Date: 20100115
  Serious: Yes (Other)
  Sender: FDA-Public Use
  Company Number: BR-ASTRAZENECA-2008UW18310

PATIENT
  Age: 36 Year
  Sex: Female

DRUGS (2)
  1. SELOZOK [Suspect]
     Indication: BLOOD PRESSURE INCREASED
     Route: 048
     Dates: start: 20080701
  2. DRAMIN [Concomitant]
     Indication: NAUSEA
     Dates: start: 20080701

REACTIONS (4)
  - BLOOD PRESSURE INCREASED [None]
  - DRUG EXPOSURE DURING PREGNANCY [None]
  - FOETAL GROWTH RETARDATION [None]
  - PREMATURE LABOUR [None]
